FAERS Safety Report 13988634 (Version 1)
Quarter: 2017Q3

REPORT INFORMATION
  Report Type: Spontaneous
  Country: BR (occurrence: BR)
  Receive Date: 20170919
  Receipt Date: 20170919
  Transmission Date: 20171128
  Serious: Yes (Hospitalization)
  Sender: FDA-Public Use
  Company Number: BR-ABBVIE-17P-020-2105811-00

PATIENT
  Age: 3 Year
  Sex: Female
  Weight: 16 kg

DRUGS (2)
  1. KLARICID [Suspect]
     Active Substance: CLARITHROMYCIN
     Indication: SINUSITIS
     Route: 048
     Dates: start: 20170825
  2. KLARICID [Suspect]
     Active Substance: CLARITHROMYCIN
     Indication: EAR INFECTION

REACTIONS (6)
  - Dysgeusia [Unknown]
  - Nausea [Recovered/Resolved]
  - Product taste abnormal [Unknown]
  - Condition aggravated [Unknown]
  - Liquid product physical issue [Unknown]
  - Vomiting [Recovered/Resolved]

NARRATIVE: CASE EVENT DATE: 20170825
